FAERS Safety Report 7904872-5 (Version None)
Quarter: 2011Q4

REPORT INFORMATION
  Report Type: 
  Country: None (occurrence: None)
  Receive Date: 20111109
  Receipt Date: 20111031
  Transmission Date: 20120403
  Serious: Yes (Hospitalization)
  Sender: FDA-Public Use
  Company Number: PHEH2011US08209

PATIENT
  Sex: Female

DRUGS (1)
  1. GLEEVEC [Suspect]
     Dosage: 400 MG, BID
     Route: 048

REACTIONS (5)
  - DIZZINESS [None]
  - FALL [None]
  - CONTUSION [None]
  - LOSS OF CONSCIOUSNESS [None]
  - FULL BLOOD COUNT DECREASED [None]
